FAERS Safety Report 21401178 (Version 2)
Quarter: 2022Q4

REPORT INFORMATION
  Report Type: Spontaneous
  Country: CZ (occurrence: CZ)
  Receive Date: 20221003
  Receipt Date: 20221010
  Transmission Date: 20230112
  Serious: Yes (Death, Other)
  Sender: FDA-Public Use
  Company Number: CZ-SA-SAC20220411000197

PATIENT
  Age: 57 Year
  Sex: Female

DRUGS (8)
  1. AUBAGIO [Suspect]
     Active Substance: TERIFLUNOMIDE
     Dosage: UNK
     Route: 048
     Dates: start: 201606
  2. AMOXICILLIN TRIHYDRATE [Concomitant]
     Active Substance: AMOXICILLIN
     Indication: Erythema migrans
  3. CITALOPRAM [Concomitant]
     Active Substance: CITALOPRAM HYDROBROMIDE
     Dosage: 1/2-0-0
  4. AUBAGIO [Concomitant]
     Active Substance: TERIFLUNOMIDE
     Dosage: 1 DF, QD
  5. LYRICA [Concomitant]
     Active Substance: PREGABALIN
     Dosage: 1-0-1
  6. RIVOTRIL [Concomitant]
     Active Substance: CLONAZEPAM
     Dosage: 0-0-1/2
  7. LIPERTANCE [Concomitant]
     Dosage: 20/10/5 MG TAB. 1-0-0
  8. DIOSMIN\HESPERIDIN [Concomitant]
     Active Substance: DIOSMIN\HESPERIDIN
     Dosage: 2-0-0

REACTIONS (23)
  - Lung neoplasm malignant [Fatal]
  - Lung adenocarcinoma [Unknown]
  - Dyspnoea [Unknown]
  - Cough [Unknown]
  - Weight decreased [Unknown]
  - Decreased appetite [Unknown]
  - Pain [Unknown]
  - Metastases to lung [Unknown]
  - Malignant pleural effusion [Unknown]
  - Metastases to lymph nodes [Unknown]
  - Metastases to peritoneum [Unknown]
  - Metastases to pelvis [Unknown]
  - Seizure [Unknown]
  - Pneumonia bacterial [Unknown]
  - Limb discomfort [Recovered/Resolved]
  - Gait disturbance [Unknown]
  - Vomiting [Unknown]
  - Constipation [Unknown]
  - Urine output decreased [Unknown]
  - Impaired quality of life [Unknown]
  - Rash pruritic [Recovered/Resolved]
  - Nausea [Unknown]
  - Condition aggravated [Unknown]

NARRATIVE: CASE EVENT DATE: 20160801
